FAERS Safety Report 4647685-2 (Version None)
Quarter: 2005Q2

REPORT INFORMATION
  Report Type: 
  Country: None (occurrence: None)
  Receive Date: 20050426
  Receipt Date: 20050414
  Transmission Date: 20051028
  Serious: No
  Sender: FDA-Public Use
  Company Number: USA-2003-0006767

PATIENT
  Age: 51 Year
  Sex: Male

DRUGS (13)
  1. OXYCODONE HCL [Suspect]
     Indication: PAIN
     Dosage: 5 MG, SEE TEXT, ORAL
     Route: 048
  2. DURAGESIC (FENTANYL) [Concomitant]
  3. ZONEGRAN [Concomitant]
  4. ELAVIL [Concomitant]
  5. AMBIEN [Concomitant]
  6. BEXTRA [Concomitant]
  7. CELEBREX [Concomitant]
  8. EFFEXOR [Concomitant]
  9. MEDROL [Concomitant]
  10. MEVACOR [Concomitant]
  11. VERAPAMIL [Concomitant]
  12. FLUOXETINE [Concomitant]
  13. TOPROL-XL [Concomitant]

REACTIONS (24)
  - ANAEMIA [None]
  - BACK PAIN [None]
  - CHEST PAIN [None]
  - CONDITION AGGRAVATED [None]
  - DEPRESSION [None]
  - HEADACHE [None]
  - HYPERHIDROSIS [None]
  - INSOMNIA [None]
  - JOINT SPRAIN [None]
  - LOCALISED INFECTION [None]
  - MUSCLE SPASMS [None]
  - OSTEOMYELITIS [None]
  - PAIN IN EXTREMITY [None]
  - PALPITATIONS [None]
  - POLLAKIURIA [None]
  - POLYDIPSIA [None]
  - POLYURIA [None]
  - ROAD TRAFFIC ACCIDENT [None]
  - SEDATION [None]
  - SKIN LESION [None]
  - SYNCOPE [None]
  - TACHYCARDIA [None]
  - TOOTH ABSCESS [None]
  - VISUAL DISTURBANCE [None]
